FAERS Safety Report 10877079 (Version 1)
Quarter: 2015Q1

REPORT INFORMATION
  Report Type: Spontaneous
  Country: JP (occurrence: JP)
  Receive Date: 20150302
  Receipt Date: 20150302
  Transmission Date: 20150721
  Serious: Yes (Hospitalization)
  Sender: FDA-Public Use
  Company Number: JP-ROCHE-1533433

PATIENT
  Age: 67 Year
  Sex: Female

DRUGS (7)
  1. FLAVERIC [Concomitant]
     Active Substance: BENPROPERINE PHOSPHATE
     Indication: INFLUENZA
     Route: 065
     Dates: start: 20150130
  2. AMLODIN [Concomitant]
     Active Substance: AMLODIPINE BESYLATE
     Route: 048
  3. NAUZELIN [Concomitant]
     Active Substance: DOMPERIDONE
     Indication: INFLUENZA
     Dosage: DRUG REPORTED AS NAUZELIN OD
     Route: 048
     Dates: start: 20150130
  4. TAMIFLU [Suspect]
     Active Substance: OSELTAMIVIR PHOSPHATE
     Indication: INFLUENZA
     Route: 048
     Dates: start: 20150130, end: 20150130
  5. LOXONIN [Concomitant]
     Active Substance: LOXOPROFEN SODIUM
     Indication: INFLUENZA
     Route: 065
     Dates: start: 20150130
  6. LIPITOR [Concomitant]
     Active Substance: ATORVASTATIN CALCIUM
     Route: 048
  7. ARTIST [Concomitant]
     Active Substance: CARVEDILOL
     Route: 048

REACTIONS (2)
  - Dyspnoea [Recovering/Resolving]
  - Chest pain [Unknown]

NARRATIVE: CASE EVENT DATE: 20150130
